FAERS Safety Report 12504175 (Version 6)
Quarter: 2017Q1

REPORT INFORMATION
  Report Type: Report from Study
  Country: FR (occurrence: FR)
  Receive Date: 20160628
  Receipt Date: 20170210
  Transmission Date: 20170428
  Serious: Yes (Death, Other)
  Sender: FDA-Public Use
  Company Number: FR-INCYTE CORPORATION-2015IN001169

PATIENT
  Age: 79 Year
  Sex: Male

DRUGS (49)
  1. JAKAVI [Suspect]
     Active Substance: RUXOLITINIB
     Indication: MYELOFIBROSIS
     Dosage: 10 MG, BID
     Route: 048
     Dates: start: 20140409
  2. LASILIX [Concomitant]
     Active Substance: FUROSEMIDE
     Dosage: 20 OT, QOD (EVERY 2 DAYS)
     Route: 065
  3. LASILIX [Concomitant]
     Active Substance: FUROSEMIDE
     Dosage: 20 OT, QOD
     Route: 065
  4. VITAMIN A [Concomitant]
     Active Substance: VITAMIN A
     Indication: PRODUCT USED FOR UNKNOWN INDICATION
     Dosage: UNK UNK, QD (IN THE EVENING)
     Route: 047
  5. CORVASAL [Concomitant]
     Active Substance: LINSIDOMINE
     Dosage: 2 MG, UNK
     Route: 065
  6. LASILIX [Concomitant]
     Active Substance: FUROSEMIDE
  7. LOPERAMIDE [Concomitant]
     Active Substance: LOPERAMIDE
     Indication: PRODUCT USED FOR UNKNOWN INDICATION
     Dosage: UNK UNK, PRN
     Route: 065
  8. FUCIDINE [Concomitant]
     Active Substance: FUSIDIC ACID
     Indication: PRODUCT USED FOR UNKNOWN INDICATION
     Route: 065
  9. KARDEGIC [Concomitant]
     Active Substance: ASPIRIN LYSINE
     Indication: MYOCARDIAL ISCHAEMIA
     Dosage: 75 MG, QD
     Route: 065
  10. KARDEGIC [Concomitant]
     Active Substance: ASPIRIN LYSINE
  11. TAHOR [Concomitant]
     Active Substance: ATORVASTATIN CALCIUM
     Dosage: 20 OT, QD
  12. DIFFU K [Concomitant]
     Active Substance: POTASSIUM CHLORIDE
     Dosage: 0.5 DF, QD
  13. LASILIX [Concomitant]
     Active Substance: FUROSEMIDE
     Indication: MYOCARDIAL ISCHAEMIA
     Dosage: 20 MG, QD
     Route: 065
  14. LASILIX [Concomitant]
     Active Substance: FUROSEMIDE
  15. IMODIUM [Concomitant]
     Active Substance: LOPERAMIDE HYDROCHLORIDE
     Indication: DIARRHOEA
     Route: 065
  16. DOLIPRANE [Concomitant]
     Active Substance: ACETAMINOPHEN
     Indication: PRODUCT USED FOR UNKNOWN INDICATION
     Dosage: 1 DF, TID
     Route: 065
  17. DOLIPRANE [Concomitant]
     Active Substance: ACETAMINOPHEN
  18. DIGOXINE [Concomitant]
     Active Substance: DIGOXIN
     Indication: MYOCARDIAL ISCHAEMIA
     Dosage: 2 MG, TID
     Route: 065
  19. DIGOXINE [Concomitant]
     Active Substance: DIGOXIN
  20. TAHOR [Concomitant]
     Active Substance: ATORVASTATIN CALCIUM
     Indication: HYPERCHOLESTEROLAEMIA
     Dosage: 1 DF, QD
     Route: 065
  21. TAHOR [Concomitant]
     Active Substance: ATORVASTATIN CALCIUM
  22. DIFFU K [Concomitant]
     Active Substance: POTASSIUM CHLORIDE
     Indication: HYPOKALAEMIA
     Dosage: 1/2, QD
     Route: 065
  23. DIFFU K [Concomitant]
     Active Substance: POTASSIUM CHLORIDE
     Dosage: 0.5 DF, QD
  24. LASILIX [Concomitant]
     Active Substance: FUROSEMIDE
  25. DIGOXINE [Concomitant]
     Active Substance: DIGOXIN
     Dosage: 0.25 UNK, UNK
  26. TAHOR [Concomitant]
     Active Substance: ATORVASTATIN CALCIUM
  27. DIFFU K [Concomitant]
     Active Substance: POTASSIUM CHLORIDE
     Dosage: 0.5 DF, QD
  28. LASILIX [Concomitant]
     Active Substance: FUROSEMIDE
     Dosage: 20 UNK, UNK
  29. FUCIDINE [Concomitant]
     Active Substance: FUSIDIC ACID
     Dosage: UNK
  30. KARDEGIC [Concomitant]
     Active Substance: ASPIRIN LYSINE
  31. DIGOXINE [Concomitant]
     Active Substance: DIGOXIN
  32. CORVASAL [Concomitant]
     Active Substance: LINSIDOMINE
     Indication: MYOCARDIAL ISCHAEMIA
     Dosage: 20 MG, QD
     Route: 065
  33. TAHOR [Concomitant]
     Active Substance: ATORVASTATIN CALCIUM
     Dosage: 20 UNK, UNK
     Route: 065
  34. IMODIUM [Concomitant]
     Active Substance: LOPERAMIDE HYDROCHLORIDE
     Dosage: UNK
  35. DOLIPRANE [Concomitant]
     Active Substance: ACETAMINOPHEN
  36. DOLIPRANE [Concomitant]
     Active Substance: ACETAMINOPHEN
  37. LOPERAMIDE [Concomitant]
     Active Substance: LOPERAMIDE
     Dosage: UNK UNK, PRN
     Route: 065
  38. DIGOXINE [Concomitant]
     Active Substance: DIGOXIN
  39. DIGOXINE [Concomitant]
     Active Substance: DIGOXIN
     Dosage: 0.25 OT, QD
     Route: 065
  40. TAHOR [Concomitant]
     Active Substance: ATORVASTATIN CALCIUM
     Dosage: 20 UNK, UNK
     Route: 065
  41. DIFFU K [Concomitant]
     Active Substance: POTASSIUM CHLORIDE
     Dosage: 0.5 DF, QD
  42. LOPERAMIDE [Concomitant]
     Active Substance: LOPERAMIDE
     Dosage: UNK UNK, PRN
     Route: 065
  43. LOPERAMIDE [Concomitant]
     Active Substance: LOPERAMIDE
     Dosage: UNK UNK, PRN
     Route: 065
  44. KARDEGIC [Concomitant]
     Active Substance: ASPIRIN LYSINE
  45. ARANESP [Suspect]
     Active Substance: DARBEPOETIN ALFA
     Indication: ANAEMIA
     Dosage: 150 UG, QW
     Route: 065
     Dates: start: 20140108
  46. DIGOXINE [Concomitant]
     Active Substance: DIGOXIN
     Dosage: 0.25 OT, QD
     Route: 065
  47. TAHOR [Concomitant]
     Active Substance: ATORVASTATIN CALCIUM
  48. DIFFU K [Concomitant]
     Active Substance: POTASSIUM CHLORIDE
     Dosage: 0.5 DF, QD
  49. LOPERAMIDE [Concomitant]
     Active Substance: LOPERAMIDE
     Dosage: UNK UNK, PRN
     Route: 065

REACTIONS (5)
  - Metastatic squamous cell carcinoma [Fatal]
  - Injection site reaction [Not Recovered/Not Resolved]
  - Salivary gland neoplasm [Unknown]
  - Second primary malignancy [Fatal]
  - Metastases to lymph nodes [Not Recovered/Not Resolved]

NARRATIVE: CASE EVENT DATE: 20141008
